FAERS Safety Report 4521059-7 (Version None)
Quarter: 2004Q4

REPORT INFORMATION
  Report Type: 
  Country: None (occurrence: None)
  Receive Date: 20041206
  Receipt Date: 20041124
  Transmission Date: 20050328
  Serious: Yes (Hospitalization)
  Sender: FDA-Public Use
  Company Number: STA-AE-04-MTX-595

PATIENT
  Age: 57 Year
  Sex: Female

DRUGS (1)
  1. METHOTREXATE [Suspect]
     Indication: RHEUMATOID ARTHRITIS
     Dosage: 15MG 1X PER WK, UNK
     Route: 065

REACTIONS (8)
  - ANIMAL SCRATCH [None]
  - ARTHRALGIA [None]
  - ARTHRITIS INFECTIVE [None]
  - CELLULITIS [None]
  - LYMPHADENOPATHY [None]
  - MECHANICAL COMPLICATION OF IMPLANT [None]
  - SEPSIS PASTEURELLA [None]
  - TENDERNESS [None]
